FAERS Safety Report 14959908 (Version 1)
Quarter: 2018Q2

REPORT INFORMATION
  Report Type: Report from Study
  Country: US (occurrence: US)
  Receive Date: 20180531
  Receipt Date: 20180531
  Transmission Date: 20180711
  Serious: Yes (Hospitalization)
  Sender: FDA-Public Use
  Company Number: US-ACTELION-A-US2016-136249

PATIENT
  Age: 51 Year
  Sex: Female
  Weight: 88.44 kg

DRUGS (5)
  1. SILDENAFIL. [Concomitant]
     Active Substance: SILDENAFIL
  2. OPSUMIT [Suspect]
     Active Substance: MACITENTAN
     Indication: PULMONARY HYPERTENSION
     Dosage: 10 MG, QD
     Route: 048
  3. AMLODIPINE [Concomitant]
     Active Substance: AMLODIPINE BESYLATE
  4. WARFARIN [Concomitant]
     Active Substance: WARFARIN
  5. TYVASO [Concomitant]
     Active Substance: TREPROSTINIL
     Dosage: UNK
     Dates: start: 201710

REACTIONS (6)
  - Asthenia [Not Recovered/Not Resolved]
  - Dizziness postural [Not Recovered/Not Resolved]
  - Pulmonary hypertension [Unknown]
  - Fall [Unknown]
  - Tooth fracture [Unknown]
  - Right ventricular failure [Unknown]
